FAERS Safety Report 9066183 (Version 1)
Quarter: 2013Q1

REPORT INFORMATION
  Report Type: Spontaneous
  Country: US (occurrence: US)
  Receive Date: 20130214
  Receipt Date: 20130214
  Transmission Date: 20140127
  Serious: Yes (Death)
  Sender: FDA-Public Use
  Company Number: US-ASTELLAS-2013US001549

PATIENT
  Sex: Male

DRUGS (1)
  1. XTANDI [Suspect]
     Indication: BONE CANCER
     Dosage: 160 MG, UID/QD
     Route: 048
     Dates: start: 20121015, end: 20121225

REACTIONS (2)
  - Off label use [Unknown]
  - Bone cancer [Fatal]
